FAERS Safety Report 19794248 (Version 1)
Quarter: 2021Q3

REPORT INFORMATION
  Report Type: Other
  Country: TR (occurrence: TR)
  Receive Date: 20210907
  Receipt Date: 20210907
  Transmission Date: 20211014
  Serious: Yes (Death, Life-Threatening, Hospitalization)
  Sender: FDA-Public Use
  Company Number: TR-AJANTA PHARMA USA INC.-2118037

PATIENT
  Age: 17 Year
  Sex: Male

DRUGS (1)
  1. METFORMIN HYDROCHLORIDE (ANDA 213651) [Suspect]
     Active Substance: METFORMIN HYDROCHLORIDE

REACTIONS (8)
  - Toxicity to various agents [Not Recovered/Not Resolved]
  - Sepsis [Fatal]
  - Lactic acidosis [Not Recovered/Not Resolved]
  - Rhabdomyolysis [Not Recovered/Not Resolved]
  - Hyperkalaemia [Unknown]
  - Multiple organ dysfunction syndrome [Not Recovered/Not Resolved]
  - Cardiac arrest [Recovered/Resolved]
  - Thrombocytopenia [Not Recovered/Not Resolved]
